FAERS Safety Report 9251119 (Version 2)
Quarter: 2013Q3

REPORT INFORMATION
  Report Type: Spontaneous
  Country: IT (occurrence: IT)
  Receive Date: 20130424
  Receipt Date: 20130701
  Transmission Date: 20140515
  Serious: Yes (Other)
  Sender: FDA-Public Use
  Company Number: IT-PFIZER INC-2013126516

PATIENT
  Age: 67 Year
  Sex: Male

DRUGS (1)
  1. SUTENT [Suspect]
     Indication: HEPATIC LESION
     Dosage: 25 MG, 1X/DAY
     Route: 048
     Dates: start: 20110301, end: 20120901

REACTIONS (3)
  - Retinal detachment [Unknown]
  - Ocular toxicity [Unknown]
  - Ulcerative keratitis [Unknown]
